FAERS Safety Report 23918882 (Version 1)
Quarter: 2024Q2

REPORT INFORMATION
  Report Type: Spontaneous
  Country: US (occurrence: US)
  Receive Date: 20240530
  Receipt Date: 20240530
  Transmission Date: 20240716
  Serious: Yes (Other)
  Sender: FDA-Public Use
  Company Number: US-BAUSCH-BL-2024-007985

PATIENT
  Age: 84 Year
  Sex: Female

DRUGS (2)
  1. MYSOLINE [Suspect]
     Active Substance: PRIMIDONE
     Indication: Seizure
     Dosage: MANY YEARS 2-3 TABLETS DAILY
     Route: 065
  2. MYSOLINE [Suspect]
     Active Substance: PRIMIDONE
     Dosage: TAKING 1 TABLET EVERY OTHER DAY
     Route: 065
     Dates: end: 20240517

REACTIONS (4)
  - Seizure [Unknown]
  - Therapy interrupted [Unknown]
  - Intentional product misuse [Unknown]
  - Insurance issue [Unknown]

NARRATIVE: CASE EVENT DATE: 20240501
